FAERS Safety Report 6137454-9 (Version None)
Quarter: 2009Q1

REPORT INFORMATION
  Report Type: 
  Country: None (occurrence: None)
  Receive Date: 20090326
  Receipt Date: 20090320
  Transmission Date: 20090719
  Serious: Yes (Hospitalization)
  Sender: FDA-Public Use
  Company Number: 1000003635

PATIENT
  Age: 86 Year
  Sex: Male

DRUGS (16)
  1. NAMENDA [Suspect]
     Indication: DEMENTIA
     Dosage: 5 MG (5 MG, 1 IN 1 D), ORAL; 10 MG (5 MG, 2 IN 1 D), ORAL; 15 MG, ORAL
     Route: 048
     Dates: start: 20090101, end: 20090107
  2. NAMENDA [Suspect]
     Indication: DEMENTIA
     Dosage: 5 MG (5 MG, 1 IN 1 D), ORAL; 10 MG (5 MG, 2 IN 1 D), ORAL; 15 MG, ORAL
     Route: 048
     Dates: start: 20090108, end: 20090114
  3. NAMENDA [Suspect]
     Indication: DEMENTIA
     Dosage: 5 MG (5 MG, 1 IN 1 D), ORAL; 10 MG (5 MG, 2 IN 1 D), ORAL; 15 MG, ORAL
     Route: 048
     Dates: start: 20090115, end: 20090119
  4. GLEEVEC (TABLETS) [Concomitant]
  5. AVANDIA (TABLETS) [Concomitant]
  6. TOPROL-XL [Concomitant]
  7. OMEPRAZOLE [Concomitant]
  8. SYNTHROID [Concomitant]
  9. VASOTEC [Concomitant]
  10. ASPIRIN [Concomitant]
  11. AVODART (TABLETS) [Concomitant]
  12. PLAVIX [Concomitant]
  13. PLAVIX [Concomitant]
  14. TYLENOL (TABLETS) [Concomitant]
  15. NITROGLYCERIN (TABLETS) [Concomitant]
  16. AMARYL [Concomitant]

REACTIONS (15)
  - ALANINE AMINOTRANSFERASE INCREASED [None]
  - AMMONIA INCREASED [None]
  - ASPARTATE AMINOTRANSFERASE INCREASED [None]
  - ASTHENIA [None]
  - BILIARY DILATATION [None]
  - BLOOD ALKALINE PHOSPHATASE INCREASED [None]
  - CHEST PAIN [None]
  - CONFUSIONAL STATE [None]
  - HEART RATE INCREASED [None]
  - LIVER FUNCTION TEST ABNORMAL [None]
  - RENAL CYST [None]
  - RENAL FAILURE [None]
  - SPLENIC CYST [None]
  - URINARY TRACT INFECTION [None]
  - VOMITING [None]
